FAERS Safety Report 9889580 (Version 2)
Quarter: 2014Q1

REPORT INFORMATION
  Report Type: Spontaneous
  Country: HU (occurrence: HU)
  Receive Date: 20140211
  Receipt Date: 20140313
  Transmission Date: 20141002
  Serious: Yes (Hospitalization)
  Sender: FDA-Public Use
  Company Number: US-ASTRAZENECA-2014SE09214

PATIENT
  Age: 22 Week
  Sex: Female

DRUGS (3)
  1. SYNAGIS [Suspect]
     Indication: ANTIVIRAL PROPHYLAXIS
     Dosage: SYNAGIS DOSE WAS GIVEN BASED ON BODY WEIGHT, MONTHLY
     Route: 030
     Dates: start: 20131129, end: 20131129
  2. SYNAGIS [Suspect]
     Indication: ANTIVIRAL PROPHYLAXIS
     Dosage: SYNAGIS DOSE WAS GIVEN BASED ON BODY WEIGHT, MONTHLY
     Route: 030
     Dates: start: 20131230, end: 20131230
  3. UNSPECIFIED VACCINATION [Concomitant]
     Indication: PRODUCT USED FOR UNKNOWN INDICATION

REACTIONS (3)
  - Viral infection [Recovering/Resolving]
  - Vomiting [Recovering/Resolving]
  - Gastroenteritis [Unknown]
